FAERS Safety Report 8732748 (Version 2)
Quarter: 2012Q4

REPORT INFORMATION
  Report Type: 
  Country: NZ (occurrence: NZ)
  Receive Date: 20120820
  Receipt Date: 20120904
  Transmission Date: 20130627
  Serious: Yes (Death, Hospitalization)
  Sender: FDA-Public Use
  Company Number: NZ-B.I. PHARMACEUTICALS,INC./RIDGEFIELD-2012-AU-01453AU

PATIENT
  Sex: Male

DRUGS (7)
  1. PRADAXA [Suspect]
     Indication: CEREBROVASCULAR ACCIDENT PROPHYLAXIS
     Dosage: 220 mg
     Dates: start: 20120430
  2. FUROSEMIDE [Concomitant]
     Dosage: 40 mg
  3. CITALOPRAM [Concomitant]
     Dosage: 20 mg
  4. CANDESARTAN [Concomitant]
     Dosage: 8 mg
  5. GLIPIZIDE [Concomitant]
     Dosage: 10 mg
  6. HALOPERIDOL [Concomitant]
     Dosage: 0.5 mg
  7. CHOLECALCIFEROL [Concomitant]
     Dosage: 1666.6667 U

REACTIONS (1)
  - Gastrointestinal haemorrhage [Fatal]
